FAERS Safety Report 6321535-0 (Version None)
Quarter: 2009Q3

REPORT INFORMATION
  Report Type: 
  Country: None (occurrence: None)
  Receive Date: 20090824
  Receipt Date: 20090814
  Transmission Date: 20100115
  Serious: Yes (Other)
  Sender: FDA-Public Use
  Company Number: US-RANBAXY-2009RR-26013

PATIENT
  Age: 63 Year
  Sex: Male

DRUGS (5)
  1. SIMVASTATIN [Suspect]
     Indication: HYPERLIPIDAEMIA
     Dosage: 10 MG, QD
  2. SIMVASTATIN [Suspect]
     Indication: CORONARY ARTERY DISEASE
  3. ATORVASTATIN [Suspect]
     Indication: HYPERLIPIDAEMIA
     Dosage: 40 MG, QD
  4. UBIDECARENONE [Concomitant]
     Dosage: 200 MG, QD
  5. UBIDECARENONE [Concomitant]
     Dosage: 400 MG, QD

REACTIONS (1)
  - AMYOTROPHIC LATERAL SCLEROSIS [None]
